FAERS Safety Report 6770202 (Version 2)
Quarter: 2013Q4

REPORT INFORMATION
  Report Type: Spontaneous
  Country: US (occurrence: US)
  Receive Date: 20080924
  Receipt Date: 20131129
  Transmission Date: 20140711
  Serious: Yes (Hospitalization, Other)
  Sender: FDA-Public Use
  Company Number: US-ASTRAZENECA-2008UW12275

PATIENT
  Age: 61 Year
  Sex: Male

DRUGS (25)
  1. SEROQUEL [Suspect]
     Indication: SCHIZOPHRENIA
     Route: 048
     Dates: start: 2006, end: 2008
  2. SEROQUEL [Suspect]
     Indication: SCHIZOPHRENIA
     Route: 048
     Dates: start: 201310
  3. METOPROLOL [Suspect]
     Indication: BLOOD PRESSURE ABNORMAL
     Route: 048
  4. LITHIUM [Concomitant]
  5. ZYPREXA [Concomitant]
     Indication: AGITATION
     Route: 048
  6. DEPAKOTE [Concomitant]
  7. CLONAPINE [Concomitant]
  8. AMBIEN [Concomitant]
  9. TRAZADONE [Concomitant]
  10. LAMICTAL [Concomitant]
  11. METFORMIN [Concomitant]
     Indication: DIABETES MELLITUS
     Route: 048
  12. PRAVACHOL [Concomitant]
  13. SYNTHROID [Concomitant]
  14. LACTULOSE [Concomitant]
  15. FINASTERIDE [Concomitant]
     Indication: PROSTATIC DISORDER
     Route: 048
     Dates: start: 201206
  16. GLYBURIDE [Concomitant]
     Indication: DIABETES MELLITUS
     Route: 048
     Dates: start: 1998
  17. JANUVIA [Concomitant]
     Indication: DIABETES MELLITUS
     Route: 048
     Dates: start: 1998
  18. LEVOTHYROXINE [Concomitant]
     Indication: HYPOTHYROIDISM
     Route: 048
     Dates: start: 2001
  19. LEVOCARNITINE [Concomitant]
     Indication: PROSTATIC DISORDER
     Route: 048
  20. SIMVASTATIN [Concomitant]
     Indication: BLOOD CHOLESTEROL INCREASED
     Route: 048
     Dates: start: 1998
  21. TAMSULOSIN [Concomitant]
     Indication: PROSTATIC DISORDER
     Route: 048
  22. ZIPRASIDONE [Concomitant]
     Indication: SCHIZOPHRENIA
     Route: 048
  23. SENEKOT [Concomitant]
     Indication: CONSTIPATION
     Dosage: 806 PRN
     Route: 048
  24. MILK OF MAGNESIA [Concomitant]
     Indication: CONSTIPATION
     Dosage: PRN
     Route: 048
  25. FLEET ENEMAS [Concomitant]
     Indication: CONSTIPATION
     Dosage: PRN
     Route: 054

REACTIONS (10)
  - Cataract [Unknown]
  - Type 2 diabetes mellitus [Unknown]
  - Urosepsis [Unknown]
  - Urinary tract infection [Unknown]
  - Cerebral haemorrhage [Unknown]
  - Fall [Unknown]
  - Head injury [Unknown]
  - Prostatic disorder [Unknown]
  - Dysuria [Unknown]
  - Visual acuity reduced [Unknown]
